FAERS Safety Report 5774621-8 (Version None)
Quarter: 2008Q2

REPORT INFORMATION
  Report Type: 
  Country: None (occurrence: None)
  Receive Date: 20080616
  Receipt Date: 20080606
  Transmission Date: 20081010
  Serious: Yes (Life-Threatening, Hospitalization)
  Sender: FDA-Public Use
  Company Number: JP-MERCK-0806USA01882

PATIENT
  Age: 56 Year
  Sex: Male

DRUGS (2)
  1. ZETIA [Suspect]
     Indication: HYPERLIPIDAEMIA
     Route: 048
     Dates: start: 20071222, end: 20080501
  2. PIOGLITAZONE HYDROCHLORIDE [Concomitant]
     Route: 065

REACTIONS (2)
  - HAEMORRHAGE SUBCUTANEOUS [None]
  - PANCYTOPENIA [None]
